FAERS Safety Report 9528226 (Version 2)
Quarter: 2013Q4

REPORT INFORMATION
  Report Type: Report from Study
  Country: JM (occurrence: JM)
  Receive Date: 20130917
  Receipt Date: 20131008
  Transmission Date: 20140711
  Serious: Yes (Death)
  Sender: FDA-Public Use
  Company Number: PHHY2013JM102411

PATIENT
  Age: 79 Year
  Sex: Female

DRUGS (3)
  1. GLIVEC [Suspect]
     Indication: GASTROINTESTINAL STROMAL TUMOUR
     Dosage: 400 MG, UNK
     Dates: start: 201212, end: 201303
  2. GLIVEC [Suspect]
     Dosage: UNK
     Dates: end: 201304
  3. GLIVEC [Suspect]
     Dosage: UNK UKN, UNK
     Dates: start: 201305, end: 201306

REACTIONS (3)
  - Death [Fatal]
  - Malaise [Unknown]
  - Anaemia [Unknown]
